FAERS Safety Report 14121884 (Version 2)
Quarter: 2017Q4

REPORT INFORMATION
  Report Type: Spontaneous
  Country: IL (occurrence: IL)
  Receive Date: 20171024
  Receipt Date: 20171116
  Transmission Date: 20180321
  Serious: Yes (Hospitalization, Other)
  Sender: FDA-Public Use
  Company Number: IL-SA-2017SA204602

PATIENT
  Age: 37 Year
  Sex: Female

DRUGS (2)
  1. CLEXANE [Suspect]
     Active Substance: ENOXAPARIN SODIUM
     Route: 058
  2. ASPIRIN. [Concomitant]
     Active Substance: ASPIRIN
     Route: 065

REACTIONS (5)
  - Injection site abscess [Recovered/Resolved]
  - Swelling [Recovered/Resolved]
  - Ulcer [Recovered/Resolved]
  - Haematoma [Recovered/Resolved]
  - Exposure during pregnancy [Unknown]
